FAERS Safety Report 17053874 (Version 2)
Quarter: 2019Q4

REPORT INFORMATION
  Report Type: Report from Study
  Country: GB (occurrence: GB)
  Receive Date: 20191120
  Receipt Date: 20191206
  Transmission Date: 20200122
  Serious: Yes (Other)
  Sender: FDA-Public Use
  Company Number: GB-SA-2019SA315921

PATIENT
  Age: 45 Year
  Sex: Male

DRUGS (1)
  1. RASBURICASE [Suspect]
     Active Substance: RASBURICASE
     Indication: ACUTE MYELOID LEUKAEMIA
     Dosage: 7.5 MG,FIXED DOSE
     Route: 042

REACTIONS (2)
  - Product use issue [Unknown]
  - Tumour lysis syndrome [Unknown]
